FAERS Safety Report 8906989 (Version 1)
Quarter: 2012Q4

REPORT INFORMATION
  Report Type: Report from Study
  Country: JP (occurrence: JP)
  Receive Date: 20121114
  Receipt Date: 20121114
  Transmission Date: 20130627
  Serious: Yes (Other)
  Sender: FDA-Public Use
  Company Number: JP-VERTEX PHARMACEUTICAL INC.-AE-2012-007811

PATIENT
  Age: 65 Year
  Sex: Female

DRUGS (5)
  1. VX-950 (TELAPREVIR) [Suspect]
     Indication: CHRONIC HEPATITIS C
     Dosage: 2250 mg, qd
     Route: 048
     Dates: start: 20120508, end: 20120511
  2. VX-950 (TELAPREVIR) [Suspect]
     Dosage: 1500 mg, qd
     Route: 048
     Dates: start: 20120512, end: 20120518
  3. PEGINTERFERON ALFA-2B [Suspect]
     Indication: CHRONIC HEPATITIS C
     Dosage: 1.5 ?g/kg, UNK
     Route: 058
     Dates: start: 20120508, end: 20120515
  4. RIBAVIRIN [Concomitant]
     Dosage: 600 mg, qd
     Route: 048
     Dates: start: 20120508, end: 20120518
  5. PARIET [Concomitant]
     Route: 048
     Dates: start: 20120511

REACTIONS (2)
  - Depression [Recovered/Resolved]
  - Drug eruption [Recovered/Resolved]
